FAERS Safety Report 24677379 (Version 1)
Quarter: 2024Q4

REPORT INFORMATION
  Report Type: Spontaneous
  Country: FR (occurrence: FR)
  Receive Date: 20241129
  Receipt Date: 20241129
  Transmission Date: 20250114
  Serious: Yes (Life-Threatening)
  Sender: ABBVIE
  Company Number: None

PATIENT
  Age: 66 Year
  Sex: Male

DRUGS (2)
  1. SKYRIZI [Suspect]
     Active Substance: RISANKIZUMAB-RZAA
     Indication: Psoriasis
     Dosage: TIME INTERVAL: 1 CYCLICAL
     Route: 058
     Dates: start: 20230104, end: 20241114
  2. STELARA [Suspect]
     Active Substance: USTEKINUMAB
     Indication: Psoriasis
     Dosage: TIME INTERVAL: 1 CYCLICAL
     Route: 058
     Dates: start: 20181226, end: 20230104

REACTIONS (1)
  - Adenocarcinoma gastric [Not Recovered/Not Resolved]

NARRATIVE: CASE EVENT DATE: 20240801
